FAERS Safety Report 11977024 (Version 1)
Quarter: 2016Q1

REPORT INFORMATION
  Report Type: Spontaneous
  Country: US (occurrence: US)
  Receive Date: 20160129
  Receipt Date: 20160129
  Transmission Date: 20160526
  Serious: No
  Sender: FDA-Public Use
  Company Number: US-PERRIGO-15US004654

PATIENT
  Age: 28 Year
  Sex: Male

DRUGS (1)
  1. IBUPROFEN 200MG-DIPHENHYDRAMINE CITRATE 38 MG 8K7 [Suspect]
     Active Substance: DIPHENHYDRAMINE HYDROCHLORIDE\IBUPROFEN
     Indication: PAIN
     Dosage: 4 TABLETS, SINGLE
     Route: 048
     Dates: start: 20150428, end: 20150428

REACTIONS (6)
  - Slow response to stimuli [Recovered/Resolved]
  - Feeling abnormal [Recovered/Resolved]
  - Muscle spasms [Recovered/Resolved]
  - Pain [Recovered/Resolved]
  - Mobility decreased [Recovered/Resolved]
  - Incorrect dose administered [Recovered/Resolved]

NARRATIVE: CASE EVENT DATE: 20150428
